FAERS Safety Report 13867929 (Version 1)
Quarter: 2017Q3

REPORT INFORMATION
  Report Type: Spontaneous
  Country: US (occurrence: US)
  Receive Date: 20170814
  Receipt Date: 20170814
  Transmission Date: 20171127
  Serious: Yes (Other)
  Sender: FDA-Public Use
  Company Number: None

PATIENT
  Age: 54 Year
  Sex: Male
  Weight: 50.5 kg

DRUGS (11)
  1. VITAMIN C [Concomitant]
     Active Substance: ASCORBIC ACID
  2. DILAUDID [Concomitant]
     Active Substance: HYDROMORPHONE HYDROCHLORIDE
  3. FLAGYL [Concomitant]
     Active Substance: METRONIDAZOLE\METRONIDAZOLE HYDROCHLORIDE
  4. OXYBUTYNIN [Concomitant]
     Active Substance: OXYBUTYNIN
  5. VITAMIN D3 [Concomitant]
     Active Substance: CHOLECALCIFEROL
  6. DAPTOMYCIN. [Concomitant]
     Active Substance: DAPTOMYCIN
  7. METOPROLOL. [Concomitant]
     Active Substance: METOPROLOL
  8. CEFTRIAXONE. [Concomitant]
     Active Substance: CEFTRIAXONE
  9. LOVENOX [Concomitant]
     Active Substance: ENOXAPARIN SODIUM
  10. GABAPENTIN. [Suspect]
     Active Substance: GABAPENTIN
     Route: 048
     Dates: start: 20170810, end: 20170811
  11. NORCO [Concomitant]
     Active Substance: ACETAMINOPHEN\HYDROCODONE BITARTRATE

REACTIONS (5)
  - Infection [None]
  - Extrapyramidal disorder [None]
  - Opisthotonus [None]
  - Hyperkinesia [None]
  - Dystonia [None]

NARRATIVE: CASE EVENT DATE: 20170811
